FAERS Safety Report 8016152-0 (Version None)
Quarter: 2011Q4

REPORT INFORMATION
  Report Type: 
  Country: None (occurrence: None)
  Receive Date: 20111230
  Receipt Date: 20111228
  Transmission Date: 20120403
  Serious: Yes (Death, Hospitalization)
  Sender: FDA-Public Use
  Company Number: BR-ROCHE-803660

PATIENT
  Age: 51 Year
  Sex: Female
  Weight: 48 kg

DRUGS (1)
  1. ACTEMRA [Suspect]
     Indication: RHEUMATOID ARTHRITIS
     Dosage: DATE OF LAST DOSE PRIOR TO SAE: 15 SEP 2011
     Route: 058

REACTIONS (1)
  - PLEURAL EFFUSION [None]
